FAERS Safety Report 6309422-5 (Version None)
Quarter: 2009Q3

REPORT INFORMATION
  Report Type: 
  Country: None (occurrence: None)
  Receive Date: 20090811
  Receipt Date: 20090731
  Transmission Date: 20100115
  Serious: Yes (Death, Life-Threatening, Other)
  Sender: FDA-Public Use
  Company Number: CERZ-1000710

PATIENT
  Age: 51 Year
  Sex: Male

DRUGS (3)
  1. CEREZYME [Suspect]
     Indication: GAUCHER'S DISEASE
     Dosage: 60 U, INTRAVENOUS ; 40 U, INTRAVENOUS
     Route: 042
     Dates: start: 20010101, end: 20090626
  2. CEREZYME [Suspect]
     Indication: GAUCHER'S DISEASE
     Dosage: 60 U, INTRAVENOUS ; 40 U, INTRAVENOUS
     Route: 042
     Dates: start: 20060101
  3. CYTARABINE [Concomitant]

REACTIONS (4)
  - ACUTE MYELOID LEUKAEMIA [None]
  - CEREBRAL HAEMORRHAGE [None]
  - THROMBOCYTOPENIA [None]
  - TRANSFUSION REACTION [None]
